FAERS Safety Report 8408603-4 (Version None)
Quarter: 2012Q2

REPORT INFORMATION
  Report Type: 
  Country: None (occurrence: None)
  Receive Date: 20120604
  Receipt Date: 20120522
  Transmission Date: 20120825
  Serious: Yes (Life-Threatening, Hospitalization)
  Sender: FDA-Public Use
  Company Number: FR-FRI-1000030975

PATIENT
  Age: 26 Year
  Sex: Female

DRUGS (4)
  1. METHADONE HCL [Concomitant]
  2. VALIUM [Concomitant]
     Route: 048
  3. ESCITALOPRAM [Suspect]
     Indication: DEPRESSION
     Dosage: 10 MG
     Route: 048
     Dates: end: 20120417
  4. ESCITALOPRAM [Suspect]
     Dosage: OVERDOSE WITH AN UNKNOWN DOSE
     Dates: start: 20120417, end: 20120417

REACTIONS (7)
  - SEROTONIN SYNDROME [None]
  - GRAND MAL CONVULSION [None]
  - LEUKOCYTOSIS [None]
  - CARDIO-RESPIRATORY ARREST [None]
  - AGITATION [None]
  - OVERDOSE [None]
  - HYPOKALAEMIA [None]
